FAERS Safety Report 5751399-5 (Version None)
Quarter: 2008Q2

REPORT INFORMATION
  Report Type: 
  Country: None (occurrence: None)
  Receive Date: 20080522
  Receipt Date: 20080507
  Transmission Date: 20081010
  Serious: No
  Sender: FDA-Public Use
  Company Number: 1022556-2008-00562

PATIENT
  Sex: Male

DRUGS (9)
  1. MELATONEX [Suspect]
     Indication: MEDICAL DIET
     Dosage: 1X, DAILY, ORAL
     Route: 048
     Dates: start: 20060901, end: 20070321
  2. ALTACE [Concomitant]
  3. LIPITOR [Concomitant]
  4. MELATONEX [Concomitant]
  5. PRILOSEC [Concomitant]
  6. ASPIRIN [Concomitant]
  7. GLUCOSAMINE CHONDROITIN [Concomitant]
  8. MULTI-VITAMIN [Concomitant]
  9. TYLENOL PM [Concomitant]

REACTIONS (10)
  - ANOREXIA [None]
  - AUTOIMMUNE DISORDER [None]
  - BILE DUCT OBSTRUCTION [None]
  - CYTOGENETIC ABNORMALITY [None]
  - DRUG INTERACTION [None]
  - FAECES PALE [None]
  - FATIGUE [None]
  - JAUNDICE [None]
  - LIVER DISORDER [None]
  - WEIGHT DECREASED [None]
